FAERS Safety Report 8858097 (Version 1)
Quarter: 2012Q4

REPORT INFORMATION
  Report Type: 
  Country: US (occurrence: US)
  Receive Date: 20121024
  Receipt Date: 20121024
  Transmission Date: 20130627
  Serious: No
  Sender: FDA-Public Use
  Company Number: US-AMGEN-USASP2011064409

PATIENT
  Age: 51 Year
  Sex: Female
  Weight: 63.49 kg

DRUGS (13)
  1. ENBREL [Suspect]
     Indication: PRODUCT USED FOR UNKNOWN INDICATION
     Dosage: 50 mg, qwk
     Route: 058
  2. TYLENOL /00020001/ [Concomitant]
     Dosage: 500 mg, UNK
  3. VOLTAREN                           /00372301/ [Concomitant]
     Dosage: 1 %, UNK
  4. RAMIPRIL [Concomitant]
     Dosage: 2.5 mg, UNK
  5. HCTZ/TRIAMT [Concomitant]
     Dosage: 25 mg, UNK
  6. FOLIC ACID [Concomitant]
     Dosage: 1 mg, UNK
  7. METHOTREXATE [Concomitant]
     Dosage: 2.5 mg, UNK
  8. MULTI TABS [Concomitant]
  9. VITAMIN B12                        /00056201/ [Concomitant]
     Dosage: 500 mug, UNK
  10. VITAMIN C                          /00008001/ [Concomitant]
     Dosage: 500 mg, UNK
  11. MELOXICAM [Concomitant]
     Dosage: 15 mg, UNK
  12. FISH OIL [Concomitant]
  13. DILTIAZEM [Concomitant]
     Dosage: 120 mg, UNK

REACTIONS (3)
  - Injection site haemorrhage [Unknown]
  - Injection site swelling [Unknown]
  - Injection site pain [Unknown]
